FAERS Safety Report 14702494 (Version 1)
Quarter: 2018Q2

REPORT INFORMATION
  Report Type: Spontaneous
  Country: FR (occurrence: FR)
  Receive Date: 20180401
  Receipt Date: 20180401
  Transmission Date: 20180711
  Serious: Yes (Other)
  Sender: FDA-Public Use
  Company Number: FR-MERCK KGAA-2044843

PATIENT
  Age: 52 Year
  Sex: Female

DRUGS (1)
  1. NOVOTHYROX [Suspect]
     Active Substance: LEVOTHYROXINE SODIUM
     Indication: AUTOIMMUNE THYROIDITIS
     Dates: start: 201704, end: 201709

REACTIONS (19)
  - Arthralgia [Recovered/Resolved]
  - Fatigue [Not Recovered/Not Resolved]
  - Memory impairment [Recovering/Resolving]
  - Blood uric acid increased [None]
  - Vitamin D decreased [None]
  - Somnolence [None]
  - Aphasia [Recovering/Resolving]
  - Social avoidant behaviour [Recovering/Resolving]
  - Dizziness [Recovering/Resolving]
  - High density lipoprotein decreased [None]
  - Speech disorder [Recovering/Resolving]
  - Social avoidant behaviour [Recovered/Resolved]
  - Product supply issue [Recovered/Resolved]
  - Depressed mood [None]
  - Apathy [None]
  - Total cholesterol/HDL ratio increased [None]
  - Low density lipoprotein increased [None]
  - Disturbance in attention [Recovering/Resolving]
  - Frustration tolerance decreased [None]

NARRATIVE: CASE EVENT DATE: 201705
